FAERS Safety Report 15175154 (Version 2)
Quarter: 2018Q3

REPORT INFORMATION
  Report Type: Report from Study
  Country: GB (occurrence: GB)
  Receive Date: 20180720
  Receipt Date: 20180724
  Transmission Date: 20181010
  Serious: Yes (Other)
  Sender: FDA-Public Use
  Company Number: PHHY2018GB048418

PATIENT
  Sex: Male

DRUGS (1)
  1. COSENTYX [Suspect]
     Active Substance: SECUKINUMAB
     Indication: PSORIASIS
     Dosage: 300 MG, WEEKLY FROM WEEK 0 TO WEEK 3 AND FROM WEEK 4 AND THEREAFTER 300 MG MONTHLY
     Route: 058
     Dates: start: 20180628

REACTIONS (1)
  - Contusion [Unknown]
